FAERS Safety Report 18853968 (Version 4)
Quarter: 2024Q1

REPORT INFORMATION
  Report Type: Spontaneous
  Country: US (occurrence: US)
  Receive Date: 20210205
  Receipt Date: 20240108
  Transmission Date: 20240410
  Serious: No
  Sender: FDA-Public Use
  Company Number: US-PFIZER INC-2021111513

PATIENT
  Age: 64 Year
  Sex: Female
  Weight: 86.7 kg

DRUGS (3)
  1. IBRANCE [Suspect]
     Active Substance: PALBOCICLIB
     Indication: Metastases to bone
     Dosage: 100 MG
     Dates: start: 20190120
  2. IBRANCE [Suspect]
     Active Substance: PALBOCICLIB
     Dosage: 100 MG
     Dates: start: 20220225
  3. IBRANCE [Suspect]
     Active Substance: PALBOCICLIB
     Dosage: TAKE 1 TABLET (100 MG TOTAL) ONE TIME EACH DAY. 21 DAYS ON 7 DAYS OFF
     Route: 048

REACTIONS (6)
  - Alopecia [Unknown]
  - Poor quality product administered [Unknown]
  - Product taste abnormal [Unknown]
  - Fatigue [Unknown]
  - Sciatica [Unknown]
  - Taste disorder [Unknown]
